FAERS Safety Report 24702939 (Version 1)
Quarter: 2024Q4

REPORT INFORMATION
  Report Type: Spontaneous
  Country: CA (occurrence: CA)
  Receive Date: 20241205
  Receipt Date: 20241205
  Transmission Date: 20250115
  Serious: Yes (Other)
  Sender: COVIS PHARMA GMBH
  Company Number: CA-Covis Pharma Europe B.V.-2024COV01402

PATIENT
  Sex: Male

DRUGS (1)
  1. OMNARIS [Suspect]
     Active Substance: CICLESONIDE
     Indication: Nasal congestion
     Dosage: 2 SPRAYS EACH NOSTRIL ONCE DAILY
     Route: 045

REACTIONS (2)
  - Tooth infection [Unknown]
  - Product dose omission issue [Unknown]
